FAERS Safety Report 13663883 (Version 1)
Quarter: 2017Q2

REPORT INFORMATION
  Report Type: Spontaneous
  Country: US (occurrence: US)
  Receive Date: 20170618
  Receipt Date: 20170618
  Transmission Date: 20170830
  Serious: Yes (Other)
  Sender: FDA-Public Use
  Company Number: None

PATIENT
  Age: 67 Year
  Sex: Female
  Weight: 65.25 kg

DRUGS (6)
  1. CEPHALEXIN. [Suspect]
     Active Substance: CEPHALEXIN
     Indication: WOUND INFECTION
     Dosage: ?          QUANTITY:21 CAPSULE(S);?
     Route: 048
     Dates: start: 20170616, end: 20170617
  2. MAGNESIUM [Concomitant]
     Active Substance: MAGNESIUM
  3. CEPHALEXIN. [Suspect]
     Active Substance: CEPHALEXIN
     Indication: LACERATION
     Dosage: ?          QUANTITY:21 CAPSULE(S);?
     Route: 048
     Dates: start: 20170616, end: 20170617
  4. VITAMIN C [Concomitant]
     Active Substance: ASCORBIC ACID
  5. ASPIRIN. [Concomitant]
     Active Substance: ASPIRIN
  6. CALCIUM CITRATE [Concomitant]
     Active Substance: CALCIUM CITRATE

REACTIONS (5)
  - Pain in extremity [None]
  - Myalgia [None]
  - Abdominal rigidity [None]
  - Arthralgia [None]
  - Discomfort [None]

NARRATIVE: CASE EVENT DATE: 20170617
